FAERS Safety Report 6398574-7 (Version None)
Quarter: 2009Q4

REPORT INFORMATION
  Report Type: 
  Country: None (occurrence: None)
  Receive Date: 20091007
  Receipt Date: 20090918
  Transmission Date: 20100525
  Serious: Yes (Other)
  Sender: FDA-Public Use
  Company Number: TCI2009A03729

PATIENT
  Age: 78 Year
  Sex: Female

DRUGS (2)
  1. PREVPAC [Suspect]
     Indication: HELICOBACTER GASTRITIS
     Dosage: 1 CARD (0.5 CARD, 2 IN 1 D) PER ORAL
     Route: 048
     Dates: start: 20090825, end: 20090825
  2. PREVPAC [Suspect]
     Indication: HELICOBACTER INFECTION
     Dosage: 1 CARD (0.5 CARD, 2 IN 1 D) PER ORAL
     Route: 048
     Dates: start: 20090825, end: 20090825

REACTIONS (6)
  - BLISTER [None]
  - ECZEMA [None]
  - ERYTHEMA [None]
  - FEELING HOT [None]
  - OEDEMA PERIPHERAL [None]
  - TOXIC SKIN ERUPTION [None]
